FAERS Safety Report 22135243 (Version 1)
Quarter: 2023Q1

REPORT INFORMATION
  Report Type: Spontaneous
  Country: US (occurrence: US)
  Receive Date: 20230324
  Receipt Date: 20230324
  Transmission Date: 20230418
  Serious: Yes (Death, Hospitalization, Other)
  Sender: FDA-Public Use
  Company Number: US-ROCHE-2935978

PATIENT
  Sex: Male

DRUGS (17)
  1. CLONAZEPAM [Suspect]
     Active Substance: CLONAZEPAM
     Indication: Product used for unknown indication
     Dosage: 0.5 MG, BID (0.5 MG ORAL TABLET BID PRN)?DAILY DOSE: 1 MILLIGRAM
     Route: 048
  2. OCREVUS [Suspect]
     Active Substance: OCRELIZUMAB
     Indication: Multiple sclerosis
     Dosage: DATE OF TREATMENT: 27/AUG/2020, 09/OCT/2020, 31/MAR/2021.?300 MG
     Route: 042
     Dates: start: 20200827, end: 20210311
  3. OCREVUS [Suspect]
     Active Substance: OCRELIZUMAB
     Indication: Multiple sclerosis
     Dosage: 300 MG
     Route: 042
     Dates: start: 20200827
  4. OCREVUS [Suspect]
     Active Substance: OCRELIZUMAB
     Indication: Multiple sclerosis
     Dosage: 300 MG
     Route: 042
     Dates: start: 20200910
  5. OCREVUS [Suspect]
     Active Substance: OCRELIZUMAB
     Indication: Multiple sclerosis
     Dosage: 300 MG
     Dates: start: 20201009
  6. OCREVUS [Suspect]
     Active Substance: OCRELIZUMAB
     Indication: Multiple sclerosis
     Dosage: 300 MG
     Route: 042
     Dates: start: 20210331
  7. OCREVUS [Suspect]
     Active Substance: OCRELIZUMAB
     Indication: Multiple sclerosis
     Dosage: 600 MG (EVERY 6 MONTHS )
     Route: 042
  8. OCREVUS [Suspect]
     Active Substance: OCRELIZUMAB
     Indication: Multiple sclerosis
     Dosage: 300 MG
     Route: 042
  9. PREGABALIN [Concomitant]
     Active Substance: PREGABALIN
     Dosage: UNK UNK, BID
     Route: 048
  10. ARMODAFINILO [Concomitant]
     Dosage: UNK UNK, DAILY
     Route: 048
  11. DULOXETINE [Concomitant]
     Active Substance: DULOXETINE
     Dosage: UNK UNK, DAILY
     Route: 048
  12. TIZANIDINE [Concomitant]
     Active Substance: TIZANIDINE
     Dosage: UNK UNK, DAILY
     Route: 048
  13. MEMANTINE [Concomitant]
     Active Substance: MEMANTINE
     Dosage: UNK, DAILY
     Route: 048
  14. LINACLOTIDE [Concomitant]
     Active Substance: LINACLOTIDE
     Dosage: UNK, DAILY
     Route: 048
  15. LOSARTAN [Concomitant]
     Active Substance: LOSARTAN
     Dosage: UNK, DAILY
     Route: 048
  16. ROSUVASTATIN CALCIUM [Concomitant]
     Active Substance: ROSUVASTATIN CALCIUM
     Dosage: UNK, DAILY
     Route: 048
  17. AMLODIPINE BESYLATE [Concomitant]
     Active Substance: AMLODIPINE BESYLATE
     Dosage: UNK, DAILY
     Route: 048

REACTIONS (4)
  - COVID-19 pneumonia [Fatal]
  - Coma [Not Recovered/Not Resolved]
  - Encephalopathy [Recovered/Resolved]
  - Blindness [Recovered/Resolved]
